FAERS Safety Report 10610653 (Version 3)
Quarter: 2014Q4

REPORT INFORMATION
  Report Type: Spontaneous
  Country: JP (occurrence: JP)
  Receive Date: 20141126
  Receipt Date: 20141227
  Transmission Date: 20150529
  Serious: No
  Sender: FDA-Public Use
  Company Number: PHHY2014JP066975

PATIENT
  Age: 72 Year
  Sex: Male

DRUGS (4)
  1. EXELON PATCH [Suspect]
     Active Substance: RIVASTIGMINE
     Indication: DEMENTIA ALZHEIMER^S TYPE
     Dosage: 1.9 MG, (RIVASTIGMINE BASE 4.5 MG), DAILY
     Route: 062
     Dates: start: 20140318
  2. NEUPRO [Concomitant]
     Active Substance: ROTIGOTINE
     Indication: PRODUCT USED FOR UNKNOWN INDICATION
     Route: 062
  3. EXELON PATCH [Suspect]
     Active Substance: RIVASTIGMINE
     Dosage: 1.9 MG, (RIVASTIGMINE BASE 4.5 MG),DAILY
     Route: 062
  4. EXELON PATCH [Suspect]
     Active Substance: RIVASTIGMINE
     Dosage: 0.95 MG, (RIVASTIGMINE BASE 2.25 MG), DAILY
     Route: 062

REACTIONS (5)
  - Application site erythema [Unknown]
  - Movement disorder [Recovering/Resolving]
  - Condition aggravated [Recovering/Resolving]
  - Dermatitis contact [Unknown]
  - Wrong technique in drug usage process [Unknown]

NARRATIVE: CASE EVENT DATE: 201403
